FAERS Safety Report 4879642-5 (Version None)
Quarter: 2006Q1

REPORT INFORMATION
  Report Type: 
  Country: None (occurrence: None)
  Receive Date: 20060111
  Receipt Date: 20051230
  Transmission Date: 20060701
  Serious: Yes (Other)
  Sender: FDA-Public Use
  Company Number: CHNY2005CA02606

PATIENT
  Age: 42 Year
  Sex: Female

DRUGS (2)
  1. HABITROL [Suspect]
     Indication: SMOKING CESSATION THERAPY
     Dosage: 21 MG, QD, TRANSDERMAL
     Route: 062
     Dates: start: 20051207
  2. DEPO-PROVERA [Concomitant]

REACTIONS (8)
  - ANOREXIA [None]
  - DIARRHOEA [None]
  - NAUSEA [None]
  - NEOPLASM [None]
  - SHOULDER PAIN [None]
  - TREATMENT NONCOMPLIANCE [None]
  - ULCER HAEMORRHAGE [None]
  - VOMITING [None]
